FAERS Safety Report 24758860 (Version 5)
Quarter: 2025Q1

REPORT INFORMATION
  Report Type: Spontaneous
  Country: JP (occurrence: JP)
  Receive Date: 20241220
  Receipt Date: 20250128
  Transmission Date: 20250408
  Serious: No
  Sender: MERCK
  Company Number: JP-MSD-2412JPN002853J

PATIENT
  Age: 61 Year
  Sex: Female

DRUGS (4)
  1. BELSOMRA [Interacting]
     Active Substance: SUVOREXANT
     Route: 048
     Dates: end: 20240713
  2. PAXLOVID [Interacting]
     Active Substance: NIRMATRELVIR\RITONAVIR
     Indication: COVID-19
     Route: 048
     Dates: start: 20240709
  3. TACROLIMUS [Interacting]
     Active Substance: TACROLIMUS
     Route: 065
     Dates: end: 20240713
  4. METOCLOPRAMIDE HYDROCHLORIDE [Concomitant]
     Active Substance: METOCLOPRAMIDE HYDROCHLORIDE
     Indication: Dehydration
     Route: 041

REACTIONS (3)
  - COVID-19 [Unknown]
  - Toxicity to various agents [Recovered/Resolved]
  - Labelled drug-drug interaction medication error [Unknown]

NARRATIVE: CASE EVENT DATE: 20240709
